FAERS Safety Report 9018524 (Version 3)
Quarter: 2014Q2

REPORT INFORMATION
  Report Type: Spontaneous
  Country: US (occurrence: US)
  Receive Date: 20130118
  Receipt Date: 20140520
  Transmission Date: 20141212
  Serious: No
  Sender: FDA-Public Use
  Company Number: US-PFIZER INC-2013020654

PATIENT
  Age: 58 Year
  Sex: Female

DRUGS (5)
  1. LIDOCAINE HCL [Suspect]
     Dosage: UNK
     Route: 061
  2. CODEINE PHOSPHATE [Suspect]
     Dosage: UNK
  3. COMPAZINE [Suspect]
     Dosage: UNK
  4. ASA [Suspect]
     Dosage: UNK
  5. HYDROCODONE [Suspect]
     Dosage: UNK

REACTIONS (1)
  - Drug hypersensitivity [Unknown]
